FAERS Safety Report 12654770 (Version 1)
Quarter: 2016Q3

REPORT INFORMATION
  Report Type: Other
  Country: None (occurrence: CN)
  Receive Date: 20160816
  Receipt Date: 20160816
  Transmission Date: 20161109
  Serious: Yes (Hospitalization, Other)
  Sender: FDA-Public Use
  Company Number: CN-MERCK KGAA-1056367

PATIENT

DRUGS (1)
  1. NOVOTHYROX [Suspect]
     Active Substance: LEVOTHYROXINE SODIUM

REACTIONS (10)
  - Pain in extremity [None]
  - Blood creatine phosphokinase increased [None]
  - Decreased appetite [None]
  - Palpitations [None]
  - Abdominal distension [None]
  - Drug dose omission [None]
  - Asthenia [None]
  - Hyperhidrosis [None]
  - Muscular weakness [None]
  - Myxoedema [None]
